FAERS Safety Report 4465911-X (Version None)
Quarter: 2004Q3

REPORT INFORMATION
  Report Type: 
  Country: None (occurrence: None)
  Receive Date: 20040930
  Receipt Date: 20040930
  Transmission Date: 20050211
  Serious: Yes (Other)
  Sender: FDA-Public Use
  Company Number: None

PATIENT
  Age: 40 Year
  Sex: Female
  Weight: 202.7579 kg

DRUGS (12)
  1. METFORMIN HCL [Suspect]
     Indication: DIABETES MELLITUS NON-INSULIN-DEPENDENT
     Dosage: 500 MG PO Q DAY
     Route: 048
     Dates: start: 20040820, end: 20040903
  2. POTASSIUM [Concomitant]
  3. AVANDIA [Concomitant]
  4. ENALAPRIL [Concomitant]
  5. HYOSCYAMINE [Concomitant]
  6. EFFEXOR XR [Concomitant]
  7. CLARITIN [Concomitant]
  8. SYNTHROID [Concomitant]
  9. PREMARIN [Concomitant]
  10. NEURONTIN [Concomitant]
  11. HYDROCHLOROTHIAZIDE [Concomitant]
  12. MERIDIA [Concomitant]

REACTIONS (1)
  - DIARRHOEA [None]
